FAERS Safety Report 19501822 (Version 3)
Quarter: 2021Q3

REPORT INFORMATION
  Report Type: Report from Study
  Country: DE (occurrence: DE)
  Receive Date: 20210707
  Receipt Date: 20210811
  Transmission Date: 20211014
  Serious: Yes (Hospitalization, Other)
  Sender: FDA-Public Use
  Company Number: DE-JNJFOC-20210125948

PATIENT
  Sex: Female
  Weight: 41 kg

DRUGS (31)
  1. CLEXANE [Concomitant]
     Active Substance: ENOXAPARIN SODIUM
     Route: 058
     Dates: start: 20210705, end: 20210712
  2. DECORTIN H [Concomitant]
     Active Substance: PREDNISOLONE
     Indication: PNEUMONIA
     Route: 048
     Dates: start: 20200825, end: 20210106
  3. FUROSEMID [FUROSEMIDE] [Concomitant]
     Active Substance: FUROSEMIDE
     Indication: RIGHT VENTRICULAR FAILURE
     Route: 042
     Dates: start: 202012, end: 20201221
  4. ZINC. [Concomitant]
     Active Substance: ZINC
     Indication: PROPHYLAXIS
     Route: 048
     Dates: start: 202101
  5. KALINOR?RETARD [Concomitant]
     Indication: HYPOKALAEMIA
     Route: 048
     Dates: start: 202012
  6. HEPARIN [Concomitant]
     Active Substance: HEPARIN SODIUM
     Indication: PROPHYLAXIS
     Route: 030
     Dates: end: 20201220
  7. SPIRIVA [Concomitant]
     Active Substance: TIOTROPIUM BROMIDE MONOHYDRATE
     Indication: PNEUMONIA
     Dates: end: 20210705
  8. BIFITERAL [Concomitant]
     Active Substance: LACTULOSE
     Indication: PROPHYLAXIS
     Route: 048
     Dates: start: 2020, end: 20210110
  9. PANTOPRAZOL [PANTOPRAZOLE] [Concomitant]
     Active Substance: PANTOPRAZOLE
     Indication: GASTRITIS PROPHYLAXIS
     Route: 048
     Dates: start: 20200829
  10. MACITENTAN [Suspect]
     Active Substance: MACITENTAN
     Indication: PULMONARY ARTERIAL HYPERTENSION
     Route: 048
     Dates: start: 20201223
  11. MIRTAZAPIN [Concomitant]
     Active Substance: MIRTAZAPINE
     Indication: DEPRESSION
     Route: 048
     Dates: start: 20200826
  12. COVID?19 VACCINE NOS. [Suspect]
     Active Substance: COVID-19 VACCINE NOS
     Route: 030
     Dates: start: 20210630
  13. CORTISON [Concomitant]
     Active Substance: CORTISONE ACETATE
  14. NACL [Concomitant]
     Active Substance: SODIUM CHLORIDE
     Indication: PNEUMONIA
  15. SALBUTAMOL [Concomitant]
     Active Substance: ALBUTEROL
     Indication: PNEUMONIA
  16. SALBUTAMOL [Concomitant]
     Active Substance: ALBUTEROL
     Dates: start: 20210704, end: 20210712
  17. MONTELUKAST SODIUM. [Concomitant]
     Active Substance: MONTELUKAST SODIUM
     Indication: PNEUMONIA
     Route: 048
     Dates: start: 20200824
  18. NEBIVOLOL. [Concomitant]
     Active Substance: NEBIVOLOL
     Indication: RIGHT VENTRICULAR FAILURE
     Route: 048
     Dates: start: 202012
  19. SPIRONOLACTON [Concomitant]
     Active Substance: SPIRONOLACTONE
     Indication: PULMONARY ARTERIAL HYPERTENSION
     Route: 048
     Dates: start: 202012
  20. PARACETAMOL [Concomitant]
     Active Substance: ACETAMINOPHEN
     Indication: PAIN
     Route: 048
     Dates: start: 20200904
  21. VIANI [Concomitant]
     Active Substance: FLUTICASONE PROPIONATE\SALMETEROL XINAFOATE
     Indication: PNEUMONIA
     Dates: end: 20210606
  22. ADCIRCA [Concomitant]
     Active Substance: TADALAFIL
     Indication: PULMONARY ARTERIAL HYPERTENSION
     Route: 048
     Dates: start: 20201222
  23. BIOTIN [Concomitant]
     Active Substance: BIOTIN
     Indication: PROPHYLAXIS
     Route: 048
     Dates: start: 202101
  24. FERROSANOL [Concomitant]
     Active Substance: FERROUS GLUCONATE
     Indication: IRON DEFICIENCY ANAEMIA
     Route: 048
     Dates: start: 20201221
  25. DECORTIN H [Concomitant]
     Active Substance: PREDNISOLONE
     Route: 048
     Dates: start: 20210601
  26. FERINJECT [Concomitant]
     Active Substance: FERRIC CARBOXYMALTOSE
     Indication: IRON DEFICIENCY ANAEMIA
     Route: 042
     Dates: start: 20210108, end: 20210108
  27. RAMIPRIL. [Concomitant]
     Active Substance: RAMIPRIL
     Indication: RIGHT VENTRICULAR FAILURE
     Route: 048
     Dates: start: 202012
  28. TORASEMID [Concomitant]
     Active Substance: TORSEMIDE
     Indication: PULMONARY ARTERIAL HYPERTENSION
     Route: 048
     Dates: start: 20200824
  29. COVID?19 VACCINE NOS. [Suspect]
     Active Substance: COVID-19 VACCINE NOS
     Indication: COVID-19
     Route: 030
     Dates: start: 202105
  30. ADCIRCA [Concomitant]
     Active Substance: TADALAFIL
     Route: 048
     Dates: start: 20200903, end: 20201222
  31. CLEXANE [Concomitant]
     Active Substance: ENOXAPARIN SODIUM
     Indication: PROPHYLAXIS
     Route: 058
     Dates: start: 20210106, end: 20210112

REACTIONS (13)
  - Lung transplant [Not Recovered/Not Resolved]
  - Dyspnoea [Recovered/Resolved]
  - Hypokalaemia [Recovered/Resolved]
  - Flatulence [Recovered/Resolved]
  - Hypersensitivity pneumonitis [Unknown]
  - Infection [Recovered/Resolved]
  - Right ventricular failure [Recovered/Resolved]
  - Cardiac failure [Recovering/Resolving]
  - Iron deficiency anaemia [Unknown]
  - Gastritis [Recovered/Resolved]
  - Pneumonia [Not Recovered/Not Resolved]
  - Sinus tachycardia [Recovered/Resolved]
  - Dizziness [Recovered/Resolved]

NARRATIVE: CASE EVENT DATE: 202012
